FAERS Safety Report 24014223 (Version 1)
Quarter: 2024Q2

REPORT INFORMATION
  Report Type: Spontaneous
  Country: JP (occurrence: JP)
  Receive Date: 20240626
  Receipt Date: 20240626
  Transmission Date: 20240716
  Serious: Yes (Hospitalization, Other)
  Sender: FDA-Public Use
  Company Number: JP-Accord-431550

PATIENT
  Age: 80 Year
  Sex: Male

DRUGS (3)
  1. OXALIPLATIN [Suspect]
     Active Substance: OXALIPLATIN
     Indication: Gastric cancer stage IV
     Dosage: THREE CYCLES
  2. GIMERACIL\OTERACIL\TEGAFUR [Suspect]
     Active Substance: GIMERACIL\OTERACIL POTASSIUM\TEGAFUR
     Indication: Gastric cancer stage IV
     Dosage: TWICE DAILY FOR 2  WEEKS, FOLLOWED BY A 1-WEEK REST. THREE CYCLE
     Route: 048
  3. GIMERACIL\OTERACIL\TEGAFUR [Suspect]
     Active Substance: GIMERACIL\OTERACIL POTASSIUM\TEGAFUR
     Indication: Gastric cancer stage IV
     Dosage: TWICE DAILY FOR 2  WEEKS, FOLLOWED BY A 1-WEEK REST. THREE CYCLE
     Route: 048

REACTIONS (2)
  - Decreased appetite [Unknown]
  - Pneumonia aspiration [Recovering/Resolving]
